FAERS Safety Report 18140736 (Version 4)
Quarter: 2020Q4

REPORT INFORMATION
  Report Type: Spontaneous
  Country: US (occurrence: US)
  Receive Date: 20200812
  Receipt Date: 20201103
  Transmission Date: 20210113
  Serious: Yes (Other)
  Sender: FDA-Public Use
  Company Number: US-PFIZER INC-2020301144

PATIENT
  Age: 65 Year
  Sex: Male

DRUGS (2)
  1. BRAFTOVI [Suspect]
     Active Substance: ENCORAFENIB
     Indication: MALIGNANT MELANOMA
     Dosage: 150 MG, DAILY
     Dates: start: 20191107, end: 20191111
  2. MEKTOVI [Suspect]
     Active Substance: BINIMETINIB
     Indication: MALIGNANT MELANOMA
     Dosage: 30 MG, 2X/DAY
     Dates: start: 20191107, end: 20191111

REACTIONS (4)
  - Arthropathy [Unknown]
  - Off label use [Unknown]
  - Product use issue [Unknown]
  - Cataract [Unknown]

NARRATIVE: CASE EVENT DATE: 20191107
